FAERS Safety Report 18998716 (Version 1)
Quarter: 2021Q1

REPORT INFORMATION
  Report Type: Spontaneous
  Country: US (occurrence: US)
  Receive Date: 20210312
  Receipt Date: 20210312
  Transmission Date: 20210420
  Serious: No
  Sender: FDA-Public Use
  Company Number: US-SA-2021SA081458

PATIENT
  Age: 71 Year
  Sex: Female
  Weight: 81 kg

DRUGS (1)
  1. AUBAGIO [Suspect]
     Active Substance: TERIFLUNOMIDE
     Indication: PLASMA CELL MYELOMA
     Dosage: 14 MG, QD
     Route: 048
     Dates: start: 20190801

REACTIONS (2)
  - Product use in unapproved indication [Unknown]
  - Hepatic enzyme increased [Unknown]

NARRATIVE: CASE EVENT DATE: 20190801
